FAERS Safety Report 5436955-6 (Version None)
Quarter: 2007Q3

REPORT INFORMATION
  Report Type: 
  Country: None (occurrence: None)
  Receive Date: 20070831
  Receipt Date: 20070819
  Transmission Date: 20080115
  Serious: Yes (Hospitalization)
  Sender: FDA-Public Use
  Company Number: PH-ELI_LILLY_AND_COMPANY-PH200708005268

PATIENT
  Age: 46 Year
  Sex: Female

DRUGS (8)
  1. CYMBALTA [Suspect]
     Dosage: 30 MG, DAILY (1/D)
     Route: 048
     Dates: start: 20070818, end: 20070819
  2. CALCIUM [Concomitant]
     Dates: start: 20061223
  3. ASCORBIC ACID [Concomitant]
     Dates: start: 20061223
  4. VITAMIN B COMPLEX CAP [Concomitant]
     Dosage: 500 UNK, UNK
     Dates: start: 20071223
  5. MICARDIS HCT [Concomitant]
     Indication: HYPERTENSION
     Dates: start: 20070120
  6. NEURONTIN [Concomitant]
     Dosage: 600 MG, UNK
     Dates: start: 20070320
  7. SIMVASTATIN [Concomitant]
     Indication: BLOOD TRIGLYCERIDES INCREASED
     Dosage: 20 MG, UNK
     Dates: start: 20070802
  8. ARCALION [Concomitant]
     Dosage: 200 MG, UNK
     Dates: start: 20070814

REACTIONS (4)
  - ABDOMINAL PAIN [None]
  - BLOOD PRESSURE INCREASED [None]
  - TREMOR [None]
  - VOMITING [None]
